FAERS Safety Report 14206278 (Version 2)
Quarter: 2017Q4

REPORT INFORMATION
  Report Type: Spontaneous
  Country: US (occurrence: US)
  Receive Date: 20171120
  Receipt Date: 20171229
  Transmission Date: 20180321
  Serious: Yes (Other)
  Sender: FDA-Public Use
  Company Number: US-009507513-1711USA006216

PATIENT
  Age: 60 Year
  Sex: Female
  Weight: 116.1 kg

DRUGS (8)
  1. METFORMIN [Concomitant]
     Active Substance: METFORMIN HYDROCHLORIDE
  2. ZANTAC [Concomitant]
     Active Substance: RANITIDINE HYDROCHLORIDE
  3. ZOFRAN [Concomitant]
     Active Substance: ONDANSETRON HYDROCHLORIDE
  4. ASPIRIN. [Concomitant]
     Active Substance: ASPIRIN
  5. LIPITOR [Concomitant]
     Active Substance: ATORVASTATIN CALCIUM
  6. ALBUTEROL SULFATE. [Concomitant]
     Active Substance: ALBUTEROL SULFATE
  7. ZEPATIER [Suspect]
     Active Substance: ELBASVIR\GRAZOPREVIR
     Indication: CHRONIC HEPATITIS C
     Dosage: 1 TABLET DAILY BY MOUTH
     Route: 048
     Dates: start: 20171109, end: 20171111
  8. FLONASE [Concomitant]
     Active Substance: FLUTICASONE PROPIONATE

REACTIONS (1)
  - Angioedema [Recovered/Resolved]

NARRATIVE: CASE EVENT DATE: 20171111
